FAERS Safety Report 9826837 (Version 1)
Quarter: 2013Q4

REPORT INFORMATION
  Report Type: Spontaneous
  Country: US (occurrence: None)
  Receive Date: 20131112
  Receipt Date: 20131112
  Transmission Date: 20140711
  Serious: Yes (Other)
  Sender: FDA-Public Use
  Company Number: US-012806

PATIENT
  Age: 73 Year
  Sex: Male
  Weight: 99.79 kg

DRUGS (11)
  1. PICO-SALAX [Suspect]
     Indication: BOWEL PREPARATION
     Dosage: 1ST PACKET AT 2 PM AND 2ND PACKET AT 11:30 PM ORAL
  2. LISINOPRIL [Concomitant]
  3. ALTACE HCTZ [Concomitant]
  4. CORDARONE [Concomitant]
  5. METOPROLOL [Concomitant]
  6. OMEPRAZOLE [Concomitant]
  7. SIMVASTATIN [Concomitant]
  8. FLOMAX [Concomitant]
  9. LEXAPRO [Concomitant]
  10. BABY ASPIRIN [Concomitant]
  11. GABAPENTINE [Concomitant]

REACTIONS (2)
  - Pollakiuria [None]
  - Drug ineffective [None]
